FAERS Safety Report 11547421 (Version 1)
Quarter: 2015Q3

REPORT INFORMATION
  Report Type: Spontaneous
  Country: BR (occurrence: BR)
  Receive Date: 20150924
  Receipt Date: 20150924
  Transmission Date: 20151125
  Serious: Yes (Hospitalization)
  Sender: FDA-Public Use
  Company Number: BR-ASTRAZENECA-2015SE53899

PATIENT
  Sex: Female

DRUGS (4)
  1. AEROLIN [Concomitant]
     Active Substance: ALBUTEROL
     Indication: BRONCHITIS
     Dosage: AS REQUIRED
     Route: 055
  2. MECLOZINE [Concomitant]
     Active Substance: MECLIZINE\MECLIZINE HYDROCHLORIDE
     Indication: RETCHING
  3. VANNAIR [Suspect]
     Active Substance: BUDESONIDE\FORMOTEROL FUMARATE DIHYDRATE
     Indication: BRONCHITIS
     Dosage: 160/4.5 MCG, THREE TIMES A DAY OR FOUR TIMES A DAY
     Route: 055
     Dates: start: 201505, end: 201505
  4. FOSTER [Suspect]
     Active Substance: BECLOMETHASONE\FORMOTEROL
     Dosage: 6/200 MCG
     Route: 055
     Dates: start: 201505

REACTIONS (6)
  - Nausea [Unknown]
  - Fatigue [Recovered/Resolved]
  - Thrombophlebitis [Unknown]
  - Amniotic fluid volume decreased [Recovered/Resolved]
  - Drug effect decreased [Recovered/Resolved]
  - Exposure during pregnancy [Recovered/Resolved]

NARRATIVE: CASE EVENT DATE: 1999
